FAERS Safety Report 24463118 (Version 1)
Quarter: 2024Q4

REPORT INFORMATION
  Report Type: Report from Study
  Country: US (occurrence: US)
  Receive Date: 20241018
  Receipt Date: 20241018
  Transmission Date: 20250115
  Serious: No
  Sender: ROCHE
  Company Number: US-ROCHE-2910160

PATIENT
  Age: 73 Year
  Sex: Female
  Weight: 64.9 kg

DRUGS (2)
  1. XOLAIR [Suspect]
     Active Substance: OMALIZUMAB
     Indication: Asthma
     Dosage: 150 MG/ML?INJECT 2ML (300MG) SUBCUTANEOUSLY EVERY 28 DAY(S),10/JUL/2018, 7/AUG/2018 11/SEP/2018, 11/
     Route: 058
     Dates: start: 20210422
  2. XOLAIR [Suspect]
     Active Substance: OMALIZUMAB
     Indication: Immunology test abnormal

REACTIONS (3)
  - Asthma [Unknown]
  - Drug ineffective [Unknown]
  - Illness [Recovered/Resolved]

NARRATIVE: CASE EVENT DATE: 20210818
